FAERS Safety Report 13052490 (Version 3)
Quarter: 2017Q1

REPORT INFORMATION
  Report Type: Report from Study
  Country: DE (occurrence: DE)
  Receive Date: 20161221
  Receipt Date: 20170113
  Transmission Date: 20170428
  Serious: Yes (Hospitalization, Other)
  Sender: FDA-Public Use
  Company Number: DE-GILEAD-2016-0249513

PATIENT
  Age: 52 Year
  Sex: Male
  Weight: 90 kg

DRUGS (8)
  1. BIFITERAL [Concomitant]
     Active Substance: LACTULOSE
  2. SOFOSBUVIR [Suspect]
     Active Substance: SOFOSBUVIR
     Indication: CHRONIC HEPATITIS C
     Dosage: 400 MG, QD
     Route: 048
     Dates: start: 20150324, end: 20150907
  3. DAKLINZA [Suspect]
     Active Substance: DACLATASVIR
     Indication: CHRONIC HEPATITIS C
     Dosage: 60 MG, QD
     Route: 048
     Dates: start: 20150324, end: 20150907
  4. SPIRONOLACTON [Concomitant]
     Active Substance: SPIRONOLACTONE
  5. AMOCLAV                            /00756801/ [Concomitant]
  6. TOREM                              /01036501/ [Concomitant]
     Active Substance: TORSEMIDE
  7. LASIX [Concomitant]
     Active Substance: FUROSEMIDE
  8. RIFAXIMIN [Concomitant]
     Active Substance: RIFAXIMIN

REACTIONS (16)
  - Blood albumin decreased [Unknown]
  - Skin ulcer [Recovering/Resolving]
  - Oedema peripheral [Not Recovered/Not Resolved]
  - Erythema [Recovering/Resolving]
  - Eyelid disorder [Unknown]
  - Lymphoedema [Unknown]
  - Peripheral swelling [Recovering/Resolving]
  - Superinfection bacterial [Recovering/Resolving]
  - Generalised oedema [Unknown]
  - Stasis dermatitis [Unknown]
  - Dyspnoea [Unknown]
  - Rectal haemorrhage [Recovering/Resolving]
  - Fatigue [Unknown]
  - Blood potassium decreased [Recovering/Resolving]
  - Ascites [Recovering/Resolving]
  - Generalised oedema [Unknown]

NARRATIVE: CASE EVENT DATE: 20150505
